FAERS Safety Report 7591566-1 (Version None)
Quarter: 2011Q3

REPORT INFORMATION
  Report Type: 
  Country: None (occurrence: None)
  Receive Date: 20110706
  Receipt Date: 20090423
  Transmission Date: 20111222
  Serious: Yes (Other)
  Sender: FDA-Public Use
  Company Number: US-BAYER-200919004NA

PATIENT
  Age: 84 Year
  Sex: Female
  Weight: 60 kg

DRUGS (24)
  1. COREG [Concomitant]
     Dosage: 3.125 MG, BID
     Route: 048
  2. BUMETANIDE [Concomitant]
     Dosage: UNK UNK, BID
     Route: 048
     Dates: start: 20000101
  3. PROTAMINE SULFATE [Concomitant]
     Dosage: 220 MG
     Route: 042
     Dates: start: 20050316
  4. CONTRAST MEDIA [Concomitant]
     Indication: CATHETERISATION CARDIAC
     Dosage: UNK
     Dates: start: 20050315
  5. PAVULON [Concomitant]
     Dosage: UNK
     Route: 042
     Dates: start: 20050316
  6. TRASYLOL [Suspect]
     Dosage: 200 ML LOADING DOSE
     Route: 042
     Dates: start: 20050316, end: 20050316
  7. ZESTRIL [Concomitant]
     Dosage: 25 MG, BID
     Route: 048
     Dates: end: 20050318
  8. FELODIPINE [Concomitant]
     Dosage: 5 MG
     Route: 048
     Dates: start: 20050315
  9. SEVOFLURANE [Concomitant]
     Dosage: 2 % INHALED
     Dates: start: 20050316
  10. INSULIN [Concomitant]
     Dosage: TITRATED
     Route: 042
     Dates: start: 20050316
  11. LASIX [Concomitant]
     Dosage: 40 MG
     Route: 042
     Dates: start: 20050315
  12. MANNITOL [Concomitant]
     Dosage: 25 MG
     Route: 042
     Dates: start: 20050316
  13. TRASYLOL [Suspect]
     Indication: PRODUCT USED FOR UNKNOWN INDICATION
     Dosage: 1 ML, ONCE
     Route: 042
     Dates: start: 20050316, end: 20050316
  14. PLENDIL [Concomitant]
     Dosage: 5 MG, QD
     Route: 048
     Dates: start: 20020101
  15. VANCOMYCIN [Concomitant]
     Dosage: 1 G
     Route: 042
     Dates: start: 20050316
  16. PHENYLEPHRINE HCL [Concomitant]
     Dosage: 0.5 MG, UNK
     Route: 042
     Dates: start: 20050316
  17. HEPARIN [Concomitant]
     Dosage: 10000 U
     Route: 042
     Dates: start: 20050316
  18. RED BLOOD CELLS [Concomitant]
     Dosage: 2 U, ONCE
     Route: 042
  19. TRASYLOL [Suspect]
     Dosage: 100 ML PRIME
     Route: 042
     Dates: start: 20050316, end: 20050316
  20. TRASYLOL [Suspect]
     Dosage: 50 ML/HOUR INFUSION
     Route: 042
     Dates: start: 20050316, end: 20050316
  21. DARVOCET-N 50 [Concomitant]
     Dosage: AS NEEDED
     Route: 048
     Dates: start: 20050315
  22. DOPAMINE HCL [Concomitant]
     Dosage: TITRATED
     Route: 042
     Dates: start: 20050316
  23. ACETYLSALICYLIC ACID SRT [Concomitant]
     Dosage: 81 MG
     Route: 048
     Dates: start: 20050315
  24. MICARDIS [Concomitant]
     Dosage: 40 MG, QD
     Route: 048
     Dates: start: 20020101

REACTIONS (14)
  - EMOTIONAL DISTRESS [None]
  - UNEVALUABLE EVENT [None]
  - RENAL INJURY [None]
  - RENAL IMPAIRMENT [None]
  - FEAR [None]
  - MEMORY IMPAIRMENT [None]
  - RENAL FAILURE [None]
  - ASTHENIA [None]
  - MULTI-ORGAN FAILURE [None]
  - STRESS [None]
  - PSYCHIATRIC SYMPTOM [None]
  - DEAFNESS [None]
  - ANXIETY [None]
  - PAIN [None]
